FAERS Safety Report 24633666 (Version 2)
Quarter: 2024Q4

REPORT INFORMATION
  Report Type: Spontaneous
  Country: IT (occurrence: IT)
  Receive Date: 20241118
  Receipt Date: 20241205
  Transmission Date: 20250115
  Serious: Yes (Death)
  Sender: BIOGEN
  Company Number: IT-BIOGEN-2024BI01289880

PATIENT
  Age: 63 Year
  Sex: Female

DRUGS (3)
  1. TOFERSEN [Suspect]
     Active Substance: TOFERSEN
     Indication: Amyotrophic lateral sclerosis
     Dosage: DATE OF MOST RECENT ADMINISTRATION PRIOR TO THE EVENT: 15 OCT 2024
     Route: 050
     Dates: start: 20240213, end: 20241106
  2. RILUZOLE [Concomitant]
     Active Substance: RILUZOLE
     Indication: Product used for unknown indication
     Dosage: 50MG X2
     Route: 050
     Dates: start: 20230911, end: 20241106
  3. PROtherSOD [Concomitant]
     Indication: Product used for unknown indication
     Dosage: 1 PER DAY
     Route: 050
     Dates: start: 20230911, end: 20241106

REACTIONS (1)
  - Amyotrophic lateral sclerosis [Fatal]

NARRATIVE: CASE EVENT DATE: 20241104
